FAERS Safety Report 15735949 (Version 3)
Quarter: 2020Q3

REPORT INFORMATION
  Report Type: Spontaneous
  Country: US (occurrence: US)
  Receive Date: 20181218
  Receipt Date: 20200721
  Transmission Date: 20201102
  Serious: Yes (Hospitalization, Other)
  Sender: FDA-Public Use
  Company Number: PHEH2018US053299

PATIENT
  Age: 53 Year
  Sex: Male

DRUGS (1)
  1. TASIGNA [Suspect]
     Active Substance: NILOTINIB
     Indication: CHRONIC MYELOID LEUKAEMIA
     Dosage: 200 MG, TID
     Route: 048
     Dates: start: 20120518, end: 20180611

REACTIONS (52)
  - Spinal osteoarthritis [Unknown]
  - Aortic arteriosclerosis [Unknown]
  - Sleep apnoea syndrome [Unknown]
  - Abscess [Unknown]
  - Cardiovascular disorder [Unknown]
  - Hyperkalaemia [Unknown]
  - Chronic kidney disease [Unknown]
  - Left atrial dilatation [Unknown]
  - Dilatation ventricular [Unknown]
  - Intermittent claudication [Unknown]
  - Pain [Unknown]
  - Pleural effusion [Unknown]
  - Angina pectoris [Unknown]
  - Left ventricular hypertrophy [Unknown]
  - Left atrial enlargement [Unknown]
  - Diastolic dysfunction [Unknown]
  - Hypermetropia [Unknown]
  - Presbyopia [Unknown]
  - Left ventricular dysfunction [Unknown]
  - Hyponatraemia [Unknown]
  - Anxiety [Unknown]
  - Constipation [Unknown]
  - Emotional distress [Unknown]
  - Hypotension [Unknown]
  - Acute kidney injury [Unknown]
  - Peripheral vascular disorder [Unknown]
  - Myocardial infarction [Unknown]
  - Peripheral arterial occlusive disease [Unknown]
  - Ischaemic cardiomyopathy [Unknown]
  - Pneumonia [Unknown]
  - Atelectasis [Unknown]
  - Astigmatism [Unknown]
  - Orthostatic hypotension [Unknown]
  - Dyspnoea exertional [Unknown]
  - Gastrooesophageal reflux disease [Unknown]
  - Coronary artery disease [Unknown]
  - Depression [Unknown]
  - Mitral valve incompetence [Unknown]
  - Myocardial ischaemia [Unknown]
  - Onychomycosis [Unknown]
  - Rash pruritic [Unknown]
  - Dyspnoea [Unknown]
  - Arteriosclerosis [Unknown]
  - Erectile dysfunction [Unknown]
  - Benign prostatic hyperplasia [Unknown]
  - Dyslipidaemia [Unknown]
  - Arthritis [Unknown]
  - Arthralgia [Unknown]
  - Cardiac failure congestive [Unknown]
  - Acute coronary syndrome [Unknown]
  - Injury [Unknown]
  - Systolic dysfunction [Unknown]

NARRATIVE: CASE EVENT DATE: 20130419
